FAERS Safety Report 4549743-X (Version None)
Quarter: 2004Q4

REPORT INFORMATION
  Report Type: 
  Country: None (occurrence: None)
  Receive Date: 20041227
  Receipt Date: 20041105
  Transmission Date: 20050328
  Serious: No
  Sender: FDA-Public Use
  Company Number: 04P-163-0279852-00

PATIENT
  Age: 35 Year
  Sex: Female
  Weight: 77.1115 kg

DRUGS (9)
  1. HUMIRA [Suspect]
     Indication: RHEUMATOID ARTHRITIS
     Dosage: 40 MG, 1 IN 2 WK, SUBCUTANEOUS
     Route: 058
     Dates: start: 20041022
  2. ELIMORON [Concomitant]
  3. LEFLUNOMIDE [Concomitant]
  4. BUCINDOLOL HYDROCHLORIDE [Concomitant]
  5. RANITIDINE HYDROCHLORIDE [Concomitant]
  6. FOLIC ACID [Concomitant]
  7. SLOW OVAROL [Concomitant]
  8. ULTRACET [Concomitant]
  9. GABITRIL [Concomitant]

REACTIONS (1)
  - INJECTION SITE ERYTHEMA [None]
